FAERS Safety Report 13340516 (Version 1)
Quarter: 2017Q1

REPORT INFORMATION
  Report Type: Spontaneous
  Country: FR (occurrence: FR)
  Receive Date: 20170316
  Receipt Date: 20170316
  Transmission Date: 20170428
  Serious: Yes (Other)
  Sender: FDA-Public Use
  Company Number: FR-ROCHE-1903936

PATIENT
  Age: 1 Year
  Sex: Female
  Weight: 6.64 kg

DRUGS (8)
  1. MABTHERA [Suspect]
     Active Substance: RITUXIMAB
     Indication: AUTOIMMUNE HAEMOLYTIC ANAEMIA
     Route: 042
     Dates: start: 20130514, end: 20130603
  2. BACTRIM [Concomitant]
     Active Substance: SULFAMETHOXAZOLE\TRIMETHOPRIM
     Route: 065
  3. CACIT (FRANCE) [Concomitant]
  4. CORTANCYL [Concomitant]
     Active Substance: PREDNISONE
  5. LOXEN (FRANCE) [Concomitant]
     Active Substance: NICARDIPINE HYDROCHLORIDE
  6. SPECIAFOLDINE [Concomitant]
     Active Substance: FOLIC ACID
  7. UVESTEROL D [Suspect]
     Active Substance: ERGOCALCIFEROL
     Indication: PRODUCT USED FOR UNKNOWN INDICATION
     Dosage: ORAL SOLUTION 1 500 IU/ML
     Route: 048
  8. INEXIUM [Concomitant]
     Active Substance: ESOMEPRAZOLE

REACTIONS (5)
  - B-lymphocyte count abnormal [Recovered/Resolved]
  - Off label use [Unknown]
  - Drug administered to patient of inappropriate age [Unknown]
  - Product use issue [Unknown]
  - Blood immunoglobulin M decreased [Recovered/Resolved]

NARRATIVE: CASE EVENT DATE: 20130531
